FAERS Safety Report 26193431 (Version 1)
Quarter: 2025Q4

REPORT INFORMATION
  Report Type: Spontaneous
  Country: GB (occurrence: GB)
  Receive Date: 20251223
  Receipt Date: 20251223
  Transmission Date: 20260117
  Serious: Yes (Other)
  Sender: ELI LILLY AND COMPANY
  Company Number: None

PATIENT
  Age: 34 Year
  Sex: Female
  Weight: 64 kg

DRUGS (19)
  1. MOUNJARO [Suspect]
     Active Substance: TIRZEPATIDE
     Indication: Weight control
     Dosage: UNK UNK, WEEKLY (1/W)
     Route: 065
     Dates: start: 20250604
  2. MOUNJARO [Suspect]
     Active Substance: TIRZEPATIDE
     Indication: Weight control
     Dosage: UNK UNK, WEEKLY (1/W)
     Route: 065
     Dates: start: 20250604
  3. MOUNJARO [Suspect]
     Active Substance: TIRZEPATIDE
     Dosage: 10 MG, WEEKLY (1/W)
     Route: 065
  4. MOUNJARO [Suspect]
     Active Substance: TIRZEPATIDE
     Dosage: 10 MG, WEEKLY (1/W)
     Route: 065
  5. MOUNJARO [Suspect]
     Active Substance: TIRZEPATIDE
     Dosage: 12.5 MG, WEEKLY (1/W)
     Route: 065
     Dates: end: 20251020
  6. MOUNJARO [Suspect]
     Active Substance: TIRZEPATIDE
     Dosage: 12.5 MG, WEEKLY (1/W)
     Route: 065
     Dates: end: 20251020
  7. LEVOTHYROXINE [Concomitant]
     Active Substance: LEVOTHYROXINE
     Indication: Thyroid disorder
     Dosage: UNK UNK, UNKNOWN
     Route: 065
     Dates: start: 20250509
  8. AMYLASE [Concomitant]
     Active Substance: AMYLASE
     Indication: Liver disorder
     Dosage: UNK UNK, UNKNOWN
     Route: 065
     Dates: start: 20250401
  9. AMYLASE [Concomitant]
     Active Substance: AMYLASE
     Indication: Gastrointestinal disorder
  10. AMYLASE [Concomitant]
     Active Substance: AMYLASE
     Indication: Pancreatic disorder
  11. PANCREATIN [Concomitant]
     Active Substance: PANCRELIPASE
     Indication: Liver disorder
     Dosage: UNK UNK, UNKNOWN
     Route: 065
  12. PANCREATIN [Concomitant]
     Active Substance: PANCRELIPASE
     Indication: Gastrointestinal disorder
  13. PANCREATIN [Concomitant]
     Active Substance: PANCRELIPASE
     Indication: Pancreatic disorder
  14. LIPASE [Concomitant]
     Active Substance: LIPASE
     Indication: Liver disorder
     Dosage: UNK UNK, UNKNOWN
     Route: 065
  15. LIPASE [Concomitant]
     Active Substance: LIPASE
     Indication: Gastrointestinal disorder
  16. LIPASE [Concomitant]
     Active Substance: LIPASE
     Indication: Pancreatic disorder
  17. PROTEASE [PROTEASE NOS] [Concomitant]
     Indication: Liver disorder
     Dosage: UNK UNK, UNKNOWN
     Route: 065
  18. PROTEASE [PROTEASE NOS] [Concomitant]
     Indication: Gastrointestinal disorder
  19. PROTEASE [PROTEASE NOS] [Concomitant]
     Indication: Pancreatic disorder

REACTIONS (4)
  - Musculoskeletal chest pain [Recovered/Resolved]
  - Decreased appetite [Unknown]
  - Diarrhoea [Recovered/Resolved]
  - Abdominal pain upper [Unknown]

NARRATIVE: CASE EVENT DATE: 20251020
